FAERS Safety Report 6100741-4 (Version None)
Quarter: 2009Q1

REPORT INFORMATION
  Report Type: 
  Country: None (occurrence: None)
  Receive Date: 20090303
  Receipt Date: 20090227
  Transmission Date: 20090719
  Serious: Yes (Hospitalization)
  Sender: FDA-Public Use
  Company Number: US-B.I. PHARMACEUTICALS,INC./RIDGEFIELD-2009-BP-02471BP

PATIENT
  Sex: Male
  Weight: 72 kg

DRUGS (7)
  1. ATROVENT HFA [Suspect]
     Route: 055
     Dates: start: 20090202
  2. OMNARIS [Suspect]
     Indication: SINUSITIS
     Route: 045
     Dates: start: 20080901
  3. SYMBICORT [Suspect]
     Dates: start: 20090202
  4. XOPENEX [Concomitant]
  5. ZYRTEC [Concomitant]
  6. PEPCID [Concomitant]
  7. PREDNISONE [Concomitant]
     Dates: start: 20090102, end: 20090211

REACTIONS (8)
  - CHEST PAIN [None]
  - DIZZINESS [None]
  - DYSPNOEA [None]
  - HYPERHIDROSIS [None]
  - MUSCLE FATIGUE [None]
  - OCULAR HYPERAEMIA [None]
  - SINUSITIS [None]
  - TREMOR [None]
